FAERS Safety Report 15126010 (Version 2)
Quarter: 2018Q3

REPORT INFORMATION
  Report Type: Spontaneous
  Country: CH (occurrence: CH)
  Receive Date: 20180710
  Receipt Date: 20180918
  Transmission Date: 20181010
  Serious: No
  Sender: FDA-Public Use
  Company Number: CH-LPDUSPRD-20181215

PATIENT
  Sex: Male

DRUGS (1)
  1. FERINJECT [Suspect]
     Active Substance: FERRIC CARBOXYMALTOSE
     Dosage: 500 MG, 3 TOTAL
     Route: 065
     Dates: start: 2017

REACTIONS (2)
  - Drug effect incomplete [Unknown]
  - No adverse event [Unknown]

NARRATIVE: CASE EVENT DATE: 2017
